FAERS Safety Report 4850024-5 (Version None)
Quarter: 2005Q4

REPORT INFORMATION
  Report Type: 
  Country: None (occurrence: None)
  Receive Date: 20051123
  Receipt Date: 20041220
  Transmission Date: 20060501
  Serious: Yes (Hospitalization)
  Sender: FDA-Public Use
  Company Number: 2004102426

PATIENT
  Age: 85 Year
  Sex: Female

DRUGS (4)
  1. LIPITOR [Suspect]
     Indication: ILL-DEFINED DISORDER
     Dosage: 20 MG
  2. LOTREL [Concomitant]
  3. HYDROCHLOROTHIAZIDE [Concomitant]
  4. GLIMEPIRIDE [Concomitant]

REACTIONS (3)
  - FALL [None]
  - MUSCULAR WEAKNESS [None]
  - MYOSITIS [None]
